FAERS Safety Report 6607155-9 (Version None)
Quarter: 2010Q1

REPORT INFORMATION
  Report Type: 
  Country: None (occurrence: None)
  Receive Date: 20100212
  Receipt Date: 20091020
  Transmission Date: 20100710
  Serious: No
  Sender: FDA-Public Use
  Company Number: 1000009580

PATIENT
  Age: 60 Year
  Sex: Male

DRUGS (10)
  1. SAVELLA [Suspect]
     Indication: NEUROPATHY PERIPHERAL
     Dosage: 12.5 MG (12.5 MG, 1 IN 1 D); 25; 50; 100 (12.5; 25; 50 MG, 2 IN 1 D), MG ORAL
     Route: 048
     Dates: start: 20091011, end: 20091011
  2. SAVELLA [Suspect]
     Indication: NEUROPATHY PERIPHERAL
     Dosage: 12.5 MG (12.5 MG, 1 IN 1 D); 25; 50; 100 (12.5; 25; 50 MG, 2 IN 1 D), MG ORAL
     Route: 048
     Dates: start: 20091012, end: 20091013
  3. SAVELLA [Suspect]
     Indication: NEUROPATHY PERIPHERAL
     Dosage: 12.5 MG (12.5 MG, 1 IN 1 D); 25; 50; 100 (12.5; 25; 50 MG, 2 IN 1 D), MG ORAL
     Route: 048
     Dates: start: 20091014, end: 20091017
  4. SAVELLA [Suspect]
     Indication: NEUROPATHY PERIPHERAL
     Dosage: 12.5 MG (12.5 MG, 1 IN 1 D); 25; 50; 100 (12.5; 25; 50 MG, 2 IN 1 D), MG ORAL
     Route: 048
     Dates: start: 20091018
  5. METHADONE HCL [Concomitant]
  6. LYRICA [Concomitant]
  7. PERCOCET [Concomitant]
  8. ZESTRIL [Concomitant]
  9. ANDROGEL [Concomitant]
  10. TRAZODONE HCL [Concomitant]

REACTIONS (1)
  - DYSURIA [None]
